FAERS Safety Report 25264493 (Version 1)
Quarter: 2025Q2

REPORT INFORMATION
  Report Type: Spontaneous
  Country: BE (occurrence: BE)
  Receive Date: 20250502
  Receipt Date: 20250502
  Transmission Date: 20250717
  Serious: Yes (Hospitalization, Other)
  Sender: JOHNSON AND JOHNSON
  Company Number: None

PATIENT
  Age: 55 Year
  Sex: Female
  Weight: 80 kg

DRUGS (5)
  1. TOPAMAX [Suspect]
     Active Substance: TOPIRAMATE
     Indication: Migraine
     Dosage: ^S OCHTENDS 25 MG, ^S AVONDS 50 MG
     Route: 048
     Dates: start: 20191216, end: 20241218
  2. TOPAMAX [Suspect]
     Active Substance: TOPIRAMATE
     Indication: Epilepsy
  3. WELLBUTRIN XL [Concomitant]
     Active Substance: BUPROPION HYDROCHLORIDE
     Indication: Product used for unknown indication
  4. ESCITALOPRAM OXALATE [Concomitant]
     Active Substance: ESCITALOPRAM OXALATE
     Indication: Product used for unknown indication
  5. Nestrolan [Concomitant]
     Indication: Product used for unknown indication

REACTIONS (4)
  - Paraesthesia [Recovered/Resolved]
  - Calculus urinary [Recovered/Resolved]
  - Depression [Recovered/Resolved]
  - Aphasia [Recovered/Resolved]
